FAERS Safety Report 25617993 (Version 1)
Quarter: 2025Q3

REPORT INFORMATION
  Report Type: Spontaneous
  Country: US (occurrence: US)
  Receive Date: 20250729
  Receipt Date: 20250729
  Transmission Date: 20251021
  Serious: Yes (Other)
  Sender: LUNDBECK
  Company Number: US-LUNDBECK-DKLU4017530

PATIENT
  Age: 2 Year
  Sex: Female
  Weight: 18.779 kg

DRUGS (12)
  1. SABRIL [Suspect]
     Active Substance: VIGABATRIN
     Indication: Epilepsy
     Dosage: 1000 MILLIGRAM
  2. SABRIL [Suspect]
     Active Substance: VIGABATRIN
     Indication: Partial seizures
  3. SABRIL [Suspect]
     Active Substance: VIGABATRIN
     Indication: Focal dyscognitive seizures
  4. SABRIL [Suspect]
     Active Substance: VIGABATRIN
     Indication: Epilepsy
  5. SABRIL [Suspect]
     Active Substance: VIGABATRIN
     Indication: Infantile spasms
  6. SABRIL [Suspect]
     Active Substance: VIGABATRIN
     Indication: Status epilepticus
  7. CLOBAZAM [Concomitant]
     Active Substance: CLOBAZAM
     Indication: Product used for unknown indication
     Route: 048
  8. KEPPRA [Concomitant]
     Active Substance: LEVETIRACETAM
     Indication: Product used for unknown indication
  9. PHENOBARBITAL AND BELLADONNA [ATROPINE SULFATE;PHENOBARBITAL] [Concomitant]
     Indication: Product used for unknown indication
  10. TRILEPTAL [Concomitant]
     Active Substance: OXCARBAZEPINE
     Indication: Product used for unknown indication
     Route: 048
  11. CLONAZEPAM [Concomitant]
     Active Substance: CLONAZEPAM
     Indication: Product used for unknown indication
  12. VITAMIN D3 [Concomitant]
     Active Substance: CHOLECALCIFEROL
     Indication: Product used for unknown indication

REACTIONS (2)
  - Drug withdrawal convulsions [Not Recovered/Not Resolved]
  - Product dose omission issue [Not Recovered/Not Resolved]
